FAERS Safety Report 4831948-1 (Version None)
Quarter: 2005Q4

REPORT INFORMATION
  Report Type: 
  Country: None (occurrence: None)
  Receive Date: 20051116
  Receipt Date: 20051107
  Transmission Date: 20060501
  Serious: Yes (Life-Threatening)
  Sender: FDA-Public Use
  Company Number: OSCN-NO-0511S-0232

PATIENT
  Age: 14 Year
  Sex: Female

DRUGS (1)
  1. OMNISCAN [Suspect]
     Dosage: SINGLE DOSE
     Dates: start: 20051102, end: 20051102

REACTIONS (1)
  - LARYNGEAL OEDEMA [None]
